FAERS Safety Report 7238395-6 (Version None)
Quarter: 2011Q1

REPORT INFORMATION
  Report Type: 
  Country: None (occurrence: None)
  Receive Date: 20110121
  Receipt Date: 20110113
  Transmission Date: 20110831
  Serious: No
  Sender: FDA-Public Use
  Company Number: US-CEPHALON-2011000223

PATIENT
  Sex: Female

DRUGS (3)
  1. FENTORA [Suspect]
     Indication: MYALGIA
     Route: 002
  2. OXYCONTIN [Concomitant]
  3. FENTORA [Suspect]
     Indication: ARTHRALGIA
     Route: 002

REACTIONS (1)
  - DRUG PRESCRIBING ERROR [None]
